FAERS Safety Report 9646237 (Version 1)
Quarter: 2013Q4

REPORT INFORMATION
  Report Type: Spontaneous
  Country: US (occurrence: US)
  Receive Date: 20131025
  Receipt Date: 20131025
  Transmission Date: 20140711
  Serious: Yes (Other)
  Sender: FDA-Public Use
  Company Number: US-ELI_LILLY_AND_COMPANY-US201310005711

PATIENT
  Sex: Male

DRUGS (8)
  1. INSULIN HUMAN [Suspect]
     Indication: TYPE 2 DIABETES MELLITUS
     Dosage: 28 U, TID
     Route: 065
     Dates: start: 201309
  2. HUMULIN NPH [Suspect]
     Indication: TYPE 2 DIABETES MELLITUS
     Dosage: 30 U, EACH EVENING
     Route: 065
     Dates: start: 201309
  3. HUMALOG 25% LISPRO, 75% NPL [Suspect]
     Indication: TYPE 2 DIABETES MELLITUS
     Dosage: UNK
     Route: 065
     Dates: start: 1999
  4. METFORMIN [Concomitant]
  5. LISINOPRIL [Concomitant]
  6. LORTAB                             /00607101/ [Concomitant]
  7. DIAZEPAM [Concomitant]
  8. LANTUS [Concomitant]

REACTIONS (10)
  - Meningioma [Unknown]
  - Sleep apnoea syndrome [Unknown]
  - Blood glucose increased [Unknown]
  - Pain [Unknown]
  - Gait disturbance [Unknown]
  - Migraine [Unknown]
  - Headache [Unknown]
  - Blood glucose decreased [Unknown]
  - Incorrect dose administered [Unknown]
  - Intentional drug misuse [Unknown]
